FAERS Safety Report 4414508-6 (Version None)
Quarter: 2004Q3

REPORT INFORMATION
  Report Type: 
  Country: None (occurrence: None)
  Receive Date: 20040702
  Receipt Date: 20030721
  Transmission Date: 20050211
  Serious: Yes (Other)
  Sender: FDA-Public Use
  Company Number: 342874

PATIENT
  Sex: Male

DRUGS (1)
  1. KLONOPIN [Suspect]
     Indication: INSOMNIA
     Dosage: 1 MG 3 PER DAY ORAL
     Route: 048
     Dates: start: 20010615

REACTIONS (3)
  - CONFUSIONAL STATE [None]
  - MENTAL IMPAIRMENT [None]
  - SUICIDAL IDEATION [None]
